FAERS Safety Report 7999704-3 (Version None)
Quarter: 2011Q4

REPORT INFORMATION
  Report Type: 
  Country: None (occurrence: None)
  Receive Date: 20111221
  Receipt Date: 20111216
  Transmission Date: 20120403
  Serious: Yes (Death)
  Sender: FDA-Public Use
  Company Number: US-ASTRAZENECA-2011SE76838

PATIENT
  Age: 39 Year
  Sex: Female

DRUGS (10)
  1. TRAMADOL HCL [Suspect]
     Route: 048
  2. IRON [Suspect]
     Route: 048
  3. BENZONATATE [Suspect]
     Route: 048
  4. FLUOXETINE [Suspect]
     Route: 048
  5. CHLORZOXAZONE [Suspect]
     Route: 048
  6. GABAPENTIN [Suspect]
     Route: 048
  7. OMEPRAZOLE [Suspect]
     Route: 048
  8. ACETAMINOPHEN AND HYDROCODONE BITARTRATE [Suspect]
     Route: 048
  9. ETHANOL [Suspect]
     Route: 048
  10. VITAMIN D [Suspect]
     Route: 048

REACTIONS (2)
  - TOXICITY TO VARIOUS AGENTS [None]
  - COMPLETED SUICIDE [None]
